FAERS Safety Report 11666349 (Version 4)
Quarter: 2015Q4

REPORT INFORMATION
  Report Type: Report from Study
  Country: JP (occurrence: JP)
  Receive Date: 20151027
  Receipt Date: 20151204
  Transmission Date: 20160304
  Serious: Yes (Hospitalization)
  Sender: FDA-Public Use
  Company Number: JP-PFIZER INC-2015352773

PATIENT
  Age: 38 Year
  Sex: Female
  Weight: 44.4 kg

DRUGS (5)
  1. PALBOCICLIB [Suspect]
     Active Substance: PALBOCICLIB
     Dosage: 75 MG, CYCLIC, DAILY FOR 3 WEEKS, FOLLOWED BY 1 WEEK OFF
     Dates: start: 20141110
  2. PALBOCICLIB [Suspect]
     Active Substance: PALBOCICLIB
     Indication: BREAST CANCER METASTATIC
     Dosage: 125 MG, CYCLIC, DAILY FOR 3 WEEKS, FOLLOWED BY 1 WEEK OFF
     Route: 048
     Dates: start: 20140217, end: 20140302
  3. PALBOCICLIB [Suspect]
     Active Substance: PALBOCICLIB
     Dosage: 100 MG, CYCLIC, DAILY FOR 3 WEEKS, FOLLOWED BY 1 WEEK OFF
     Dates: start: 20140318, end: 20141019
  4. FASLODEX [Suspect]
     Active Substance: FULVESTRANT
     Indication: BREAST CANCER METASTATIC
     Dosage: 500 MG, CYCLIC, DAYS 1 AND 15 OF CYCLE 1, THEN DAY 1 OF EACH SUBSEQUENT 28-DAY CYCLE
     Route: 030
     Dates: start: 20140217
  5. GOSERELIN [Suspect]
     Active Substance: GOSERELIN
     Indication: BREAST CANCER METASTATIC
     Dosage: UNK

REACTIONS (2)
  - Malaise [Recovering/Resolving]
  - Nausea [Recovering/Resolving]

NARRATIVE: CASE EVENT DATE: 20150629
